FAERS Safety Report 4989976-1 (Version None)
Quarter: 2006Q2

REPORT INFORMATION
  Report Type: 
  Country: None (occurrence: None)
  Receive Date: 20060503
  Receipt Date: 20060425
  Transmission Date: 20061013
  Serious: Yes (Hospitalization)
  Sender: FDA-Public Use
  Company Number: US-JNJFOC-20060406199

PATIENT
  Sex: Female
  Weight: 57.15 kg

DRUGS (8)
  1. DURAGESIC-100 [Suspect]
     Route: 062
  2. DURAGESIC-100 [Suspect]
     Route: 062
  3. DURAGESIC-100 [Suspect]
     Route: 062
  4. DURAGESIC-100 [Suspect]
     Route: 062
  5. MORPHINE [Concomitant]
     Route: 048
  6. ACTIQ [Concomitant]
     Route: 048
  7. CYMBALTA [Concomitant]
     Indication: DEPRESSION
     Route: 048
  8. COLACE [Concomitant]
     Indication: CONSTIPATION
     Route: 048

REACTIONS (8)
  - ARTHRALGIA [None]
  - DYSPHAGIA [None]
  - DYSPNOEA [None]
  - POSTOPERATIVE INFECTION [None]
  - SICKLE CELL ANAEMIA [None]
  - STAPHYLOCOCCAL INFECTION [None]
  - THROAT CANCER [None]
  - WOUND INFECTION STAPHYLOCOCCAL [None]
